FAERS Safety Report 7124787-2 (Version None)
Quarter: 2010Q4

REPORT INFORMATION
  Report Type: 
  Country: None (occurrence: None)
  Receive Date: 20101123
  Receipt Date: 20101123
  Transmission Date: 20110411
  Serious: Yes (Hospitalization, Disabling)
  Sender: FDA-Public Use
  Company Number: None

PATIENT
  Age: 58 Year
  Sex: Male
  Weight: 129.2752 kg

DRUGS (1)
  1. ZOLOFT [Suspect]

REACTIONS (2)
  - FEELING ABNORMAL [None]
  - SUICIDE ATTEMPT [None]
